FAERS Safety Report 18007552 (Version 1)
Quarter: 2020Q3

REPORT INFORMATION
  Report Type: Report from Study
  Country: CA (occurrence: CA)
  Receive Date: 20200710
  Receipt Date: 20200710
  Transmission Date: 20201103
  Serious: Yes (Hospitalization)
  Sender: FDA-Public Use
  Company Number: CA-JNJFOC-20200704152

PATIENT
  Age: 61 Year
  Sex: Male

DRUGS (2)
  1. STELARA [Suspect]
     Active Substance: USTEKINUMAB
  2. STELARA [Suspect]
     Active Substance: USTEKINUMAB
     Indication: PRODUCT USED FOR UNKNOWN INDICATION
     Route: 058

REACTIONS (6)
  - Metastases to central nervous system [Unknown]
  - Respiratory failure [Unknown]
  - Lung neoplasm malignant [Unknown]
  - Chronic obstructive pulmonary disease [Unknown]
  - Femoral neck fracture [Unknown]
  - Fall [Unknown]
